FAERS Safety Report 9966185 (Version 2)
Quarter: 2014Q1

REPORT INFORMATION
  Report Type: Report from Study
  Country: US (occurrence: US)
  Receive Date: 20140305
  Receipt Date: 20140305
  Transmission Date: 20141002
  Serious: No
  Sender: FDA-Public Use
  Company Number: US-ABBVIE-13P-163-1100348-00

PATIENT
  Age: 58 Year
  Sex: Female

DRUGS (8)
  1. HUMIRA [Suspect]
     Indication: COLITIS ULCERATIVE
     Dates: start: 20130523, end: 20130523
  2. HUMIRA [Suspect]
     Dates: end: 20130725
  3. HUMIRA [Suspect]
     Dates: start: 20130725
  4. COLAZAL [Concomitant]
     Indication: COLITIS ULCERATIVE
  5. FAMOTIDINE [Concomitant]
     Indication: COLITIS ULCERATIVE
  6. PREDNISONE [Concomitant]
     Indication: PRODUCT USED FOR UNKNOWN INDICATION
  7. RESTASIS [Concomitant]
     Indication: PRODUCT USED FOR UNKNOWN INDICATION
  8. APRISO [Concomitant]

REACTIONS (2)
  - Colitis ulcerative [Not Recovered/Not Resolved]
  - Rash [Not Recovered/Not Resolved]
